FAERS Safety Report 6734043-X (Version None)
Quarter: 2010Q2

REPORT INFORMATION
  Report Type: 
  Country: None (occurrence: None)
  Receive Date: 20100520
  Receipt Date: 20100511
  Transmission Date: 20101027
  Serious: Yes (Other)
  Sender: FDA-Public Use
  Company Number: IT-ELI_LILLY_AND_COMPANY-IT201005002356

PATIENT
  Sex: Male

DRUGS (3)
  1. HUMALOG [Suspect]
     Indication: DIABETES MELLITUS
     Dosage: 37 IU, DAILY (1/D)
     Route: 058
     Dates: start: 20090101, end: 20100425
  2. LANTUS [Concomitant]
     Indication: DIABETES MELLITUS
     Dosage: 38 IU, DAILY (1/D)
     Route: 058
     Dates: start: 20090101, end: 20100425
  3. GLUCOSE SOLUTION [Concomitant]
     Dosage: 5 %, UNKNOWN
     Route: 042

REACTIONS (1)
  - HYPOGLYCAEMIC UNCONSCIOUSNESS [None]
